FAERS Safety Report 19939441 (Version 1)
Quarter: 2021Q4

REPORT INFORMATION
  Report Type: Other
  Country: JP (occurrence: JP)
  Receive Date: 20211011
  Receipt Date: 20211011
  Transmission Date: 20220304
  Serious: Yes (Other)
  Sender: FDA-Public Use
  Company Number: JP-NAVINTA LLC-000199

PATIENT
  Age: 41 Year
  Sex: Female
  Weight: 60 kg

DRUGS (7)
  1. ROPIVACAINE. [Suspect]
     Active Substance: ROPIVACAINE HYDROCHLORIDE
     Indication: Epidural anaesthesia
     Dosage: 4 ML/H; MIXTURE OF ROPIVACAINE 0.2%, 200ML
     Route: 003
  2. FENTANYL [Concomitant]
     Active Substance: FENTANYL
     Indication: Epidural anaesthesia
     Dosage: 4 ML/H WITH MIXTURE OF FENTANYL 16 ML,0.8 MG
     Route: 037
  3. BUPIVACAINE [Concomitant]
     Active Substance: BUPIVACAINE
     Indication: Spinal anaesthesia
     Dosage: 2.4 ML OF ISOBARIC 0.5% BUPIVACAINE
     Route: 037
  4. ROPIVACAINE. [Suspect]
     Active Substance: ROPIVACAINE HYDROCHLORIDE
     Indication: Epidural anaesthesia
     Dosage: 2 ML/H; MIXTURE OF ROPIVACAINE 0.2%, 200ML
  5. ROPIVACAINE. [Suspect]
     Active Substance: ROPIVACAINE HYDROCHLORIDE
     Indication: Epidural anaesthesia
     Dosage: 4 ML/H; MIXTURE OF ROPIVACAINE 0.2%, 200ML
  6. FENTANYL [Concomitant]
     Active Substance: FENTANYL
     Indication: Epidural anaesthesia
     Dosage: 2 ML/H WITH MIXTURE OF FENTANYL 16 ML,0.8 MG
  7. FENTANYL [Concomitant]
     Active Substance: FENTANYL
     Indication: Epidural anaesthesia
     Dosage: 4 ML/H WITH MIXTURE OF FENTANYL 16 ML,0.8 MG

REACTIONS (3)
  - Neurotoxicity [Recovering/Resolving]
  - Monoplegia [Recovering/Resolving]
  - Condition aggravated [Recovering/Resolving]
